FAERS Safety Report 25793154 (Version 3)
Quarter: 2025Q4

REPORT INFORMATION
  Report Type: Spontaneous
  Country: US (occurrence: US)
  Receive Date: 20250911
  Receipt Date: 20251112
  Transmission Date: 20260118
  Serious: Yes (Hospitalization, Other)
  Sender: SANOFI AVENTIS
  Company Number: US-SA-2025SA267490

PATIENT
  Age: 74 Year
  Sex: Male
  Weight: 58 kg

DRUGS (3)
  1. FERRLECIT [Suspect]
     Active Substance: SODIUM FERRIC GLUCONATE COMPLEX
     Indication: Iron deficiency anaemia
     Dosage: 250 MG, 1X; 250 MG 1 DOSE EVERY 1 TOTAL[ 250 MG]
     Route: 042
     Dates: start: 20250818, end: 20250818
  2. FERRLECIT [Suspect]
     Active Substance: SODIUM FERRIC GLUCONATE COMPLEX
     Dosage: 187.500MG
     Route: 041
     Dates: start: 20250818, end: 20250818
  3. FERRLECIT [Suspect]
     Active Substance: SODIUM FERRIC GLUCONATE COMPLEX
     Dosage: 62.500MG
     Route: 041
     Dates: start: 20250818, end: 20250818

REACTIONS (23)
  - Anaphylactic reaction [Recovered/Resolved]
  - Unresponsive to stimuli [Recovered/Resolved]
  - Chest pain [Recovered/Resolved]
  - Pain [Recovered/Resolved]
  - Painful respiration [Recovered/Resolved]
  - Eye movement disorder [Recovered/Resolved]
  - Respiratory arrest [Recovered/Resolved]
  - Infarction [Unknown]
  - Neutrophil count increased [Unknown]
  - Fibrin D dimer increased [Unknown]
  - Brain natriuretic peptide increased [Unknown]
  - Monocyte count decreased [Unknown]
  - Dizziness [Unknown]
  - Red blood cell count decreased [Unknown]
  - Haemoglobin decreased [Unknown]
  - Platelet count decreased [Unknown]
  - Aspartate aminotransferase increased [Unknown]
  - Chest discomfort [Recovered/Resolved]
  - Nausea [Unknown]
  - Lymphocyte count decreased [Unknown]
  - Back pain [Recovered/Resolved]
  - Blood potassium increased [Unknown]
  - Hiatus hernia [Unknown]

NARRATIVE: CASE EVENT DATE: 20250818
